FAERS Safety Report 5994840-5 (Version None)
Quarter: 2008Q4

REPORT INFORMATION
  Report Type: 
  Country: None (occurrence: None)
  Receive Date: 20081212
  Receipt Date: 20080914
  Transmission Date: 20090506
  Serious: No
  Sender: FDA-Public Use
  Company Number: US-ABBOTT-08P-163-0476599-00

PATIENT
  Sex: Female
  Weight: 45.4 kg

DRUGS (2)
  1. HUMIRA [Suspect]
     Indication: CROHN'S DISEASE
     Dosage: DAY 1
     Dates: start: 20080601
  2. HUMIRA [Suspect]
     Dates: start: 20070702, end: 20071101

REACTIONS (2)
  - BODY TEMPERATURE INCREASED [None]
  - INCREASED UPPER AIRWAY SECRETION [None]
